FAERS Safety Report 6763709-0 (Version None)
Quarter: 2010Q2

REPORT INFORMATION
  Report Type: 
  Country: None (occurrence: None)
  Receive Date: 20100610
  Receipt Date: 20100602
  Transmission Date: 20101027
  Serious: Yes (Other)
  Sender: FDA-Public Use
  Company Number: JP-BAYER-201012128BYL

PATIENT
  Age: 84 Year
  Sex: Female

DRUGS (8)
  1. CIPROXAN-I.V. [Suspect]
     Indication: PNEUMONIA
     Dosage: TOTAL DAILY DOSE: 600 MG  UNIT DOSE: 300 MG
     Route: 041
     Dates: start: 20071228, end: 20080103
  2. AVELOX [Suspect]
     Indication: PNEUMONIA
     Dosage: TOTAL DAILY DOSE: 400 MG
     Route: 048
     Dates: start: 20080104, end: 20080108
  3. AGENTS USED FOR COMMON COLD [Suspect]
     Indication: DRUG USE FOR UNKNOWN INDICATION
     Route: 048
     Dates: start: 20071225, end: 20071228
  4. SOLDEM 3A [Concomitant]
     Dosage: TOTAL DAILY DOSE: 400 ML
     Route: 041
     Dates: start: 20071228, end: 20080103
  5. SERENACE [Concomitant]
     Dosage: TOTAL DAILY DOSE: 2 MG
     Route: 048
     Dates: start: 20071228, end: 20080103
  6. ATELEC [Concomitant]
     Dosage: TOTAL DAILY DOSE: 10 MG
     Route: 048
     Dates: start: 20071228, end: 20080111
  7. LENDORMIN [Concomitant]
     Dosage: TOTAL DAILY DOSE: 0.25 MG
     Route: 048
     Dates: start: 20071228, end: 20080103
  8. YOKU-KAN-SAN [Concomitant]
     Dosage: TOTAL DAILY DOSE: 7.5 G
     Route: 048
     Dates: start: 20080108

REACTIONS (2)
  - DIARRHOEA [None]
  - MELAENA [None]
